FAERS Safety Report 5698392-9 (Version None)
Quarter: 2008Q2

REPORT INFORMATION
  Report Type: 
  Country: None (occurrence: None)
  Receive Date: 20080403
  Receipt Date: 20080326
  Transmission Date: 20081010
  Serious: Yes (Other)
  Sender: FDA-Public Use
  Company Number: 2007SP019335

PATIENT
  Age: 50 Year
  Sex: Male

DRUGS (4)
  1. TEMODAL [Suspect]
     Indication: GLIOBLASTOMA
     Dosage: 300 MG; PO
     Route: 048
     Dates: start: 20070101, end: 20070101
  2. KEPPRA [Suspect]
     Indication: EPILEPSY
     Dates: start: 20070101
  3. VALCYTE [Concomitant]
  4. ERGENYL [Concomitant]

REACTIONS (6)
  - ALANINE AMINOTRANSFERASE INCREASED [None]
  - BLEEDING TIME PROLONGED [None]
  - BONE MARROW FAILURE [None]
  - GAMMA-GLUTAMYLTRANSFERASE INCREASED [None]
  - HEMIPLEGIA [None]
  - HEPATIC ENZYME INCREASED [None]
